FAERS Safety Report 23647365 (Version 6)
Quarter: 2024Q2

REPORT INFORMATION
  Report Type: Report from Study
  Country: DE (occurrence: DE)
  Receive Date: 20240319
  Receipt Date: 20240418
  Transmission Date: 20240715
  Serious: Yes (Other)
  Sender: FDA-Public Use
  Company Number: DE-002147023-NVSC2024DE057143

PATIENT
  Age: 37 Year
  Sex: Female
  Weight: 93 kg

DRUGS (5)
  1. COSENTYX [Suspect]
     Active Substance: SECUKINUMAB
     Indication: Hidradenitis
     Dosage: 300 MG, ONCE/SINGLE
     Route: 058
     Dates: start: 20240216, end: 20240216
  2. COSENTYX [Suspect]
     Active Substance: SECUKINUMAB
     Dosage: 300 MG, ONCE/SINGLE
     Route: 058
     Dates: start: 20240223, end: 20240223
  3. COSENTYX [Suspect]
     Active Substance: SECUKINUMAB
     Dosage: 300 MG, ONCE/SINGLE
     Route: 058
     Dates: start: 20240301, end: 20240301
  4. COSENTYX [Suspect]
     Active Substance: SECUKINUMAB
     Dosage: 300 MG, ONCE/SINGLE
     Route: 058
     Dates: start: 20240308, end: 20240308
  5. COSENTYX [Suspect]
     Active Substance: SECUKINUMAB
     Dosage: 300 MG, ONCE/SINGLE
     Route: 058
     Dates: start: 20240315, end: 20240315

REACTIONS (1)
  - Lymph node abscess [Recovered/Resolved]

NARRATIVE: CASE EVENT DATE: 20240313
